FAERS Safety Report 5300458-X (Version None)
Quarter: 2007Q2

REPORT INFORMATION
  Report Type: 
  Country: None (occurrence: None)
  Receive Date: 20070418
  Receipt Date: 20070413
  Transmission Date: 20071010
  Serious: Yes (Life-Threatening, Hospitalization, Other)
  Sender: FDA-Public Use
  Company Number: DE-AVENTIS-200611077DE

PATIENT
  Age: 36 Year
  Sex: Male

DRUGS (2)
  1. KETEK [Suspect]
     Indication: SINOBRONCHITIS
     Route: 048
     Dates: start: 20060331, end: 20060401
  2. AMBRODOXY [Concomitant]
     Indication: SINOBRONCHITIS
     Dosage: DOSE QUANTITY: 1
     Route: 048
     Dates: start: 20060327, end: 20060331

REACTIONS (24)
  - ABDOMINAL SYMPTOM [None]
  - ABSCESS [None]
  - APHASIA [None]
  - CEREBRAL CYST [None]
  - COGNITIVE DISORDER [None]
  - CONCUSSION [None]
  - CONTUSION [None]
  - DISTURBANCE IN ATTENTION [None]
  - DYSCALCULIA [None]
  - FALL [None]
  - FRACTURE [None]
  - HAEMOPNEUMOTHORAX [None]
  - HEAD INJURY [None]
  - INJURY [None]
  - MOVEMENT DISORDER [None]
  - PNEUMONIA [None]
  - PSYCHOTIC DISORDER [None]
  - PSYCHOTIC DISORDER DUE TO A GENERAL MEDICAL CONDITION [None]
  - RETROGRADE AMNESIA [None]
  - RIB FRACTURE [None]
  - SCAR [None]
  - THINKING ABNORMAL [None]
  - TRAUMATIC BRAIN INJURY [None]
  - WOUND INFECTION STAPHYLOCOCCAL [None]
